FAERS Safety Report 22069165 (Version 1)
Quarter: 2023Q1

REPORT INFORMATION
  Report Type: Spontaneous
  Country: IE (occurrence: IE)
  Receive Date: 20230307
  Receipt Date: 20230307
  Transmission Date: 20230417
  Serious: Yes (Other)
  Sender: FDA-Public Use
  Company Number: IE-JANSSEN-2023-PEL-000101

PATIENT
  Age: 31 Year
  Sex: Female

DRUGS (10)
  1. FENTANYL [Suspect]
     Active Substance: FENTANYL
     Indication: Epidural analgesia
     Dosage: LEVOBUPIVACAINE 0.1% WITH FENTANYL 2 ?G/ML
     Route: 008
  2. FENTANYL [Suspect]
     Active Substance: FENTANYL
     Dosage: 100 MICROGRAM
     Route: 008
  3. LEVOBUPIVACAINE [Suspect]
     Active Substance: LEVOBUPIVACAINE
     Indication: Epidural analgesia
     Dosage: LEVOBUPIVACAINE 0.1% WITH FENTANYL 2 ?G/ML
     Route: 065
  4. LIDOCAINE [Suspect]
     Active Substance: LIDOCAINE
     Indication: Product used for unknown indication
     Dosage: 10 MILLILITER (GIVEN 5 ML INCREMENTS, 5 MIN APART)
     Route: 008
  5. BUPIVACAINE [Suspect]
     Active Substance: BUPIVACAINE
     Indication: Epidural analgesia
     Dosage: 2.5 MILLIGRAM
     Route: 008
  6. BUPIVACAINE [Suspect]
     Active Substance: BUPIVACAINE
     Dosage: 7.5 MILLIGRAM
     Route: 008
  7. SEVOFLURANE [Concomitant]
     Active Substance: SEVOFLURANE
     Indication: Maintenance of anaesthesia
     Dosage: UNK
     Route: 065
  8. SUCCINYLCHOLINE [Concomitant]
     Active Substance: SUCCINYLCHOLINE
     Indication: Induction of anaesthesia
     Dosage: 150 MILLIGRAM
     Route: 065
  9. OXYGEN [Concomitant]
     Active Substance: OXYGEN
     Indication: Maintenance of anaesthesia
     Dosage: UNK
     Route: 065
  10. PROPOFOL [Concomitant]
     Active Substance: PROPOFOL
     Indication: Induction of anaesthesia
     Dosage: 100 MILLIGRAM
     Route: 065

REACTIONS (6)
  - Horner^s syndrome [Recovered/Resolved]
  - Blood pressure decreased [Recovered/Resolved]
  - Product use issue [Unknown]
  - Product administration error [Unknown]
  - Off label use [Unknown]
  - Maternal exposure during delivery [Unknown]
